FAERS Safety Report 6613779-5 (Version None)
Quarter: 2010Q1

REPORT INFORMATION
  Report Type: 
  Country: None (occurrence: None)
  Receive Date: 20100304
  Receipt Date: 20100303
  Transmission Date: 20100710
  Serious: Yes (Hospitalization)
  Sender: FDA-Public Use
  Company Number: US-ROXANE LABORATORIES, INC.-2010-RO-00232RO

PATIENT
  Sex: Female

DRUGS (4)
  1. LITHIUM CARBONATE [Suspect]
  2. THORAZINE [Concomitant]
     Dosage: 20 MG
  3. ASPIRIN [Concomitant]
     Indication: BACK INJURY
     Route: 048
  4. ASPIRIN [Concomitant]
     Indication: PAIN IN EXTREMITY

REACTIONS (3)
  - GAIT DISTURBANCE [None]
  - SPEECH DISORDER [None]
  - THERAPEUTIC AGENT TOXICITY [None]
